FAERS Safety Report 8024254-8 (Version None)
Quarter: 2012Q1

REPORT INFORMATION
  Report Type: 
  Country: None (occurrence: None)
  Receive Date: 20120105
  Receipt Date: 20120104
  Transmission Date: 20120608
  Serious: Yes (Death, Other)
  Sender: FDA-Public Use
  Company Number: PHHY2012EG000741

PATIENT
  Age: 61 Year
  Sex: Female

DRUGS (1)
  1. EXFORGE [Suspect]
     Indication: HYPERTENSION
     Dosage: 1 DF, (01 TABLET PER DAY)
     Route: 048
     Dates: start: 20091108

REACTIONS (2)
  - DEATH [None]
  - BLOOD PRESSURE INCREASED [None]
